FAERS Safety Report 9270915 (Version 1)
Quarter: 2013Q2

REPORT INFORMATION
  Report Type: Spontaneous
  Country: TR (occurrence: TR)
  Receive Date: 20130506
  Receipt Date: 20130506
  Transmission Date: 20140414
  Serious: Yes (Hospitalization)
  Sender: FDA-Public Use
  Company Number: TR-GE HEALTHCARE MEDICAL DIAGNOSTICS-OMPQ-NO-1304S-0521

PATIENT
  Age: 49 Year
  Sex: Female
  Weight: 65 kg

DRUGS (2)
  1. OMNIPAQUE [Suspect]
     Indication: PRODUCT USED FOR UNKNOWN INDICATION
     Route: 042
     Dates: start: 20111019, end: 20111019
  2. OMNIPAQUE [Suspect]
     Indication: DIAGNOSTIC PROCEDURE

REACTIONS (4)
  - Extravasation [Recovered/Resolved]
  - Injection site oedema [Recovered/Resolved]
  - Injection site pain [Recovered/Resolved]
  - Injection site vesicles [Recovered/Resolved]
